FAERS Safety Report 6444469-X (Version None)
Quarter: 2009Q4

REPORT INFORMATION
  Report Type: 
  Country: None (occurrence: None)
  Receive Date: 20091110
  Receipt Date: 20090821
  Transmission Date: 20100525
  Serious: Yes (Other)
  Sender: FDA-Public Use
  Company Number: 1000008389

PATIENT
  Age: 53 Year
  Sex: Female

DRUGS (5)
  1. SAVELLA [Suspect]
     Indication: FIBROMYALGIA
     Dosage: 12.5 MG (12.5 MG, 1 IN 1 D), ORAL; 25 MG (12.5 MG, 2 IN1 D), ORAL
     Route: 048
     Dates: start: 20090724, end: 20090724
  2. SAVELLA [Suspect]
     Indication: FIBROMYALGIA
     Dosage: 12.5 MG (12.5 MG, 1 IN 1 D), ORAL; 25 MG (12.5 MG, 2 IN1 D), ORAL
     Route: 048
     Dates: start: 20090725, end: 20090726
  3. SAVELLA [Suspect]
     Indication: FIBROMYALGIA
     Dosage: 50 MG (25 MG, 2 IN 1 D), ORAL
     Route: 048
     Dates: start: 20090727, end: 20090728
  4. OXYCONTIN [Concomitant]
  5. OXYCODONE HCL [Concomitant]

REACTIONS (5)
  - DELUSION [None]
  - HOT FLUSH [None]
  - NAUSEA [None]
  - PYREXIA [None]
  - VOMITING [None]
